FAERS Safety Report 11703814 (Version 1)
Quarter: 2015Q4

REPORT INFORMATION
  Report Type: Spontaneous
  Country: DE (occurrence: DE)
  Receive Date: 20151106
  Receipt Date: 20151106
  Transmission Date: 20160304
  Serious: Yes (Hospitalization)
  Sender: FDA-Public Use
  Company Number: DE-009507513-1511DEU003312

PATIENT
  Age: 11 Year
  Sex: Male

DRUGS (1)
  1. GRAZAX [Suspect]
     Active Substance: PHLEUM PRATENSE POLLEN
     Indication: PRODUCT USED FOR UNKNOWN INDICATION
     Dosage: 75000 SQ; ORAL LYOPHILISATE FREQUENCY UNKNOWN
     Route: 060
     Dates: start: 20151016

REACTIONS (5)
  - Cough [Recovered/Resolved]
  - Syncope [Recovered/Resolved]
  - Asthma [Recovered/Resolved]
  - Cold sweat [Recovered/Resolved]
  - Pharyngeal oedema [Recovered/Resolved]

NARRATIVE: CASE EVENT DATE: 20151016
